FAERS Safety Report 4334846-5 (Version None)
Quarter: 2004Q2

REPORT INFORMATION
  Report Type: 
  Country: None (occurrence: None)
  Receive Date: 20040405
  Receipt Date: 20040329
  Transmission Date: 20050107
  Serious: Yes (Life-Threatening)
  Sender: FDA-Public Use
  Company Number: 2004-01-1488

PATIENT
  Age: 37 Year
  Sex: Female
  Weight: 50 kg

DRUGS (5)
  1. INTRON A [Suspect]
     Indication: METASTATIC MALIGNANT MELANOMA
     Dosage: SEE IMAGE
     Dates: start: 20031101, end: 20031201
  2. INTRON A [Suspect]
     Indication: METASTATIC MALIGNANT MELANOMA
     Dosage: SEE IMAGE
     Dates: start: 20031201, end: 20040101
  3. INTRON A [Suspect]
     Indication: METASTATIC MALIGNANT MELANOMA
     Dosage: SEE IMAGE
     Dates: start: 20040201
  4. PROZAC [Concomitant]
  5. ACETAMINOPHEN [Concomitant]

REACTIONS (1)
  - HYPERKALAEMIA [None]
